FAERS Safety Report 16360734 (Version 1)
Quarter: 2019Q2

REPORT INFORMATION
  Report Type: Spontaneous
  Country: CN (occurrence: CN)
  Receive Date: 20190528
  Receipt Date: 20190528
  Transmission Date: 20190711
  Serious: Yes (Hospitalization)
  Sender: FDA-Public Use
  Company Number: CN-ACCORD-129672

PATIENT
  Age: 49 Year
  Sex: Male

DRUGS (8)
  1. DONEPEZIL/DONEPEZIL HYDROCHLORIDE [Suspect]
     Active Substance: DONEPEZIL HYDROCHLORIDE
     Indication: DEPRESSION
  2. CEFTIZOXIME [Concomitant]
     Active Substance: CEFTIZOXIME
     Indication: ANTIBIOTIC THERAPY
  3. CIPRAMIL [CITALOPRAM HYDROBROMIDE] [Concomitant]
     Active Substance: CITALOPRAM HYDROBROMIDE
     Dates: start: 20180215
  4. OLANZAPINE. [Suspect]
     Active Substance: OLANZAPINE
     Indication: DEPRESSION
     Dates: start: 20180218
  5. METHYLPREDNISOLONE. [Concomitant]
     Active Substance: METHYLPREDNISOLONE
     Indication: ANTIBIOTIC THERAPY
  6. ARICEPT [Concomitant]
     Active Substance: DONEPEZIL HYDROCHLORIDE
     Dates: start: 20180215
  7. ACICLOVIR [Concomitant]
     Active Substance: ACYCLOVIR
     Dates: end: 20180220
  8. CITALOPRAM [Suspect]
     Active Substance: CITALOPRAM HYDROBROMIDE
     Indication: DEPRESSION
     Dates: end: 20180222

REACTIONS (1)
  - Serotonin syndrome [Recovered/Resolved]
